FAERS Safety Report 8497300 (Version 3)
Quarter: 2012Q4

REPORT INFORMATION
  Report Type: Spontaneous
  Country: US (occurrence: None)
  Receive Date: 20120330
  Receipt Date: 20120822
  Transmission Date: 20130627
  Serious: No
  Sender: FDA-Public Use
  Company Number: 2012P1009731

PATIENT

DRUGS (2)
  1. KETOROLAC TROMETHAMINE [Suspect]
     Indication: EYE EDEMA
     Route: 047
  2. TOBRAMYCIN [Suspect]
     Indication: EYE OEDEMA
     Dosage: OPH
     Route: 047
     Dates: end: 201110

REACTIONS (2)
  - Drug ineffective [None]
  - Intraocular pressure increased [None]
